FAERS Safety Report 8427004-6 (Version None)
Quarter: 2012Q2

REPORT INFORMATION
  Report Type: 
  Country: None (occurrence: None)
  Receive Date: 20120323
  Receipt Date: 20110627
  Transmission Date: 20120825
  Serious: Yes (Hospitalization)
  Sender: FDA-Public Use
  Company Number: 163-21880-11043431

PATIENT
  Age: 62 Year
  Sex: Male
  Weight: 200 kg

DRUGS (10)
  1. NOVOLOG (INSULIN ASPART)(UNKNOWN) [Concomitant]
  2. DEXAMETHASONE [Concomitant]
  3. CYMBALTA [Concomitant]
  4. AMITIZA(LUBIPROST [Concomitant]
  5. LYRICA [Concomitant]
  6. OXYCODONE HCL(OXYCODONE HYDROCHLORIDE)(TABLETS) [Concomitant]
  7. LANTUS (INSULIN GLARGINE)(UNKNOWN) [Concomitant]
  8. REVLIMID [Suspect]
     Indication: MULTIPLE MYELOMA
     Dosage: 25 MG,1 IN 1 D, PO
     Route: 048
     Dates: start: 20110403, end: 20110414
  9. ZANTAC(RANITIDINE HYDROCHLORIDE)(TABLETS) [Concomitant]
  10. ASPIRIN [Concomitant]

REACTIONS (2)
  - OEDEMA PERIPHERAL [None]
  - LIVER FUNCTION TEST ABNORMAL [None]
